FAERS Safety Report 17545124 (Version 1)
Quarter: 2020Q1

REPORT INFORMATION
  Report Type: Spontaneous
  Country: FR (occurrence: FR)
  Receive Date: 20200316
  Receipt Date: 20200316
  Transmission Date: 20200409
  Serious: Yes (Death)
  Sender: FDA-Public Use
  Company Number: FR-MYLANLABS-2020M1026412

PATIENT
  Age: 93 Year
  Sex: Female
  Weight: 94.8 kg

DRUGS (9)
  1. PARACETAMOL [Concomitant]
     Active Substance: ACETAMINOPHEN
  2. FUROSEMIDE. [Concomitant]
     Active Substance: FUROSEMIDE
  3. CEFTRIAXONE MYLAN 1 G, POUDRE POUR SOLUTION INJECTABLE [Suspect]
     Active Substance: CEFTRIAXONE
     Indication: LUNG DISORDER
     Dosage: 1 DOSAGE FORM, QD
     Route: 042
     Dates: start: 20200114, end: 20200116
  4. ACIDE FOLIQUE [Concomitant]
     Active Substance: FOLIC ACID
  5. LEVOFLOXACINE ARROW [Suspect]
     Active Substance: LEVOFLOXACIN
     Indication: LUNG DISORDER
     Dosage: 2 DOSAGE FORM, QD
     Route: 048
     Dates: start: 20200121
  6. AMOXICILLINE/ACIDE CLAVULANIQ. ARROW [Suspect]
     Active Substance: AMOXICILLIN\CLAVULANATE POTASSIUM
     Indication: LUNG DISORDER
     Dosage: 2 DOSAGE FORM, QD
     Route: 048
     Dates: start: 20200112, end: 20200114
  7. FLUCONAZOLE KABI [Suspect]
     Active Substance: FLUCONAZOLE
     Indication: LUNG DISORDER
     Dosage: 400 MILLIGRAM, QD
     Route: 042
     Dates: start: 20200114, end: 20200116
  8. CITALOPRAM [Suspect]
     Active Substance: CITALOPRAM HYDROBROMIDE
     Indication: PRODUCT USED FOR UNKNOWN INDICATION
     Dosage: 20 MILLIGRAM, QD
     Route: 048
  9. COUMADINE [Suspect]
     Active Substance: WARFARIN SODIUM
     Indication: PRODUCT USED FOR UNKNOWN INDICATION
     Dosage: 4 DOSAGE FORM, QD
     Route: 048
     Dates: end: 20200125

REACTIONS (2)
  - Gastrointestinal haemorrhage [Fatal]
  - Anaemia [Fatal]

NARRATIVE: CASE EVENT DATE: 20200128
